FAERS Safety Report 19292711 (Version 1)
Quarter: 2021Q2

REPORT INFORMATION
  Report Type: Spontaneous
  Country: JP (occurrence: JP)
  Receive Date: 20210524
  Receipt Date: 20210524
  Transmission Date: 20210717
  Serious: Yes (Other)
  Sender: FDA-Public Use
  Company Number: JP-009507513-2105JPN001289J

PATIENT
  Age: 9 Decade
  Sex: Female

DRUGS (2)
  1. BELSOMRA [Suspect]
     Active Substance: SUVOREXANT
     Dosage: UNK
     Route: 048
     Dates: start: 20210509
  2. TOVIAZ [Concomitant]
     Active Substance: FESOTERODINE FUMARATE
     Indication: NOCTURIA
     Dosage: UNK
     Route: 048

REACTIONS (8)
  - Hypoacusis [Unknown]
  - Visual acuity reduced [Unknown]
  - Depressed level of consciousness [Unknown]
  - Oropharyngeal pain [Unknown]
  - Head discomfort [Unknown]
  - Myalgia [Unknown]
  - Drug ineffective [Unknown]
  - Insomnia [Unknown]

NARRATIVE: CASE EVENT DATE: 202105
